FAERS Safety Report 24541419 (Version 3)
Quarter: 2024Q4

REPORT INFORMATION
  Report Type: Spontaneous
  Country: JP (occurrence: JP)
  Receive Date: 20241023
  Receipt Date: 20241204
  Transmission Date: 20250114
  Serious: Yes (Other)
  Sender: REGENERON
  Company Number: JP-BAYER-2024A148129

PATIENT
  Age: 74 Year
  Sex: Male

DRUGS (2)
  1. EYLEA HD [Suspect]
     Active Substance: AFLIBERCEPT
     Indication: Age-related macular degeneration
     Dosage: 1ST TIME, 0.07ML, LEFT EYE, SOLUTION FOR INJECTION, STRENGTH: 114.3 MG/ML
     Dates: start: 20241003, end: 20241003
  2. EYLEA HD [Suspect]
     Active Substance: AFLIBERCEPT
     Indication: Choroidal neovascularisation

REACTIONS (6)
  - Visual acuity reduced [Recovered/Resolved]
  - Vision blurred [Recovering/Resolving]
  - Intraocular pressure increased [Recovering/Resolving]
  - Anterior chamber inflammation [Recovering/Resolving]
  - Endophthalmitis [Recovered/Resolved]
  - Vitreous opacities [Recovering/Resolving]

NARRATIVE: CASE EVENT DATE: 20241011
